FAERS Safety Report 12899519 (Version 3)
Quarter: 2016Q4

REPORT INFORMATION
  Report Type: Spontaneous
  Country: GR (occurrence: GR)
  Receive Date: 20161101
  Receipt Date: 20161205
  Transmission Date: 20170207
  Serious: Yes (Death)
  Sender: FDA-Public Use
  Company Number: GR-CELGENEUS-GRC-2016105197

PATIENT
  Age: 78 Year
  Sex: Female

DRUGS (8)
  1. ZYLAPOUR [Concomitant]
     Indication: HYPERURICAEMIA
     Dosage: NOT PROVIDED
     Route: 048
     Dates: start: 2013
  2. ARIXTRA [Concomitant]
     Active Substance: FONDAPARINUX SODIUM
     Indication: DEEP VEIN THROMBOSIS
     Dosage: NOT PROVIDED
     Route: 058
     Dates: start: 2016
  3. REVLIMID [Suspect]
     Active Substance: LENALIDOMIDE
     Indication: PLASMA CELL MYELOMA
     Dosage: 25MG
     Route: 048
     Dates: start: 20151106, end: 20160907
  4. TRIATEC/ FRUMIL [Concomitant]
     Indication: HYPERTENSION
     Dosage: NOT PROVIDED
     Route: 048
  5. DEXATON [Concomitant]
     Indication: PLASMA CELL MYELOMA
     Dosage: NOT PROVIDED
     Route: 048
     Dates: start: 2013
  6. NEULASTA [Concomitant]
     Active Substance: PEGFILGRASTIM
     Indication: NEUTROPENIA
     Dosage: NOT PROVIDED
     Route: 058
  7. ARIXTRA [Concomitant]
     Active Substance: FONDAPARINUX SODIUM
     Indication: PULMONARY EMBOLISM
  8. PULMICORT/FORADIX [Concomitant]
     Indication: CHRONIC OBSTRUCTIVE PULMONARY DISEASE
     Dosage: NOT PROVIDED
     Route: 065

REACTIONS (2)
  - Respiratory tract infection [Fatal]
  - Aspiration [Fatal]

NARRATIVE: CASE EVENT DATE: 20161009
